FAERS Safety Report 6272572-6 (Version None)
Quarter: 2009Q3

REPORT INFORMATION
  Report Type: 
  Country: None (occurrence: None)
  Receive Date: 20090716
  Receipt Date: 20090716
  Transmission Date: 20100115
  Serious: Yes (Other)
  Sender: FDA-Public Use
  Company Number: None

PATIENT
  Age: 52 Year
  Sex: Female
  Weight: 68.0396 kg

DRUGS (4)
  1. PRISTIQ [Suspect]
     Indication: ANXIETY
     Dosage: 1 PILL ONCE PER DAY PO
     Route: 048
     Dates: start: 20090323, end: 20090523
  2. PRISTIQ [Suspect]
     Indication: DEPRESSION
     Dosage: 1 PILL ONCE PER DAY PO
     Route: 048
     Dates: start: 20090323, end: 20090523
  3. PRISTIQ [Suspect]
     Indication: ANXIETY
     Dosage: 1 PILL ONCE PER DAY PO
     Route: 048
     Dates: start: 20090529, end: 20090609
  4. PRISTIQ [Suspect]
     Indication: DEPRESSION
     Dosage: 1 PILL ONCE PER DAY PO
     Route: 048
     Dates: start: 20090529, end: 20090609

REACTIONS (23)
  - ABDOMINAL DISTENSION [None]
  - ANXIETY [None]
  - COLD SWEAT [None]
  - CONSTIPATION [None]
  - DECREASED APPETITE [None]
  - DIARRHOEA [None]
  - DISTURBANCE IN ATTENTION [None]
  - DIZZINESS [None]
  - FATIGUE [None]
  - HEADACHE [None]
  - HOT FLUSH [None]
  - INSOMNIA [None]
  - JOINT SWELLING [None]
  - LETHARGY [None]
  - MEMORY IMPAIRMENT [None]
  - MUSCLE SPASMS [None]
  - NAUSEA [None]
  - PARAESTHESIA [None]
  - TACHYCARDIA [None]
  - TEMPERATURE INTOLERANCE [None]
  - TREMOR [None]
  - VERTIGO [None]
  - VISUAL IMPAIRMENT [None]
